FAERS Safety Report 20142870 (Version 1)
Quarter: 2021Q4

REPORT INFORMATION
  Report Type: Report from Study
  Country: FR (occurrence: None)
  Receive Date: 20211202
  Receipt Date: 20211202
  Transmission Date: 20220304
  Serious: Yes (Hospitalization)
  Sender: FDA-Public Use
  Company Number: FR-ROCHE-2965348

PATIENT
  Age: 75 Year
  Sex: Male
  Weight: 89 kg

DRUGS (1)
  1. OBINUTUZUMAB [Suspect]
     Active Substance: OBINUTUZUMAB
     Indication: B-cell lymphoma refractory
     Dosage: ON 10/NOV/2021, FROM 5:50 PM TO 11:00 PM, HE HAD MOST RECENT DOSE (1000 MG) OF OBINUTUZUMAB.
     Route: 042
     Dates: start: 20211110

REACTIONS (1)
  - Cytokine release syndrome [Recovered/Resolved]

NARRATIVE: CASE EVENT DATE: 20211121
